FAERS Safety Report 15339820 (Version 2)
Quarter: 2018Q3

REPORT INFORMATION
  Report Type: Report from Study
  Country: TR (occurrence: TR)
  Receive Date: 20180831
  Receipt Date: 20180907
  Transmission Date: 20181010
  Serious: Yes (Death)
  Sender: FDA-Public Use
  Company Number: PHHY2018TR085937

PATIENT
  Age: 48 Year
  Sex: Male
  Weight: 61 kg

DRUGS (1)
  1. PKC412 [Suspect]
     Active Substance: MIDOSTAURIN
     Indication: ACUTE MYELOID LEUKAEMIA
     Dosage: 50 MG, BID
     Route: 048
     Dates: start: 20180730, end: 20180809

REACTIONS (3)
  - Septic shock [Fatal]
  - Febrile neutropenia [Fatal]
  - Hypotension [Fatal]

NARRATIVE: CASE EVENT DATE: 20180807
